FAERS Safety Report 5993040-2 (Version None)
Quarter: 2008Q4

REPORT INFORMATION
  Report Type: 
  Country: None (occurrence: None)
  Receive Date: 20081212
  Receipt Date: 20081209
  Transmission Date: 20090506
  Serious: Yes (Other)
  Sender: FDA-Public Use
  Company Number: ES-BRISTOL-MYERS SQUIBB COMPANY-14436380

PATIENT
  Age: 42 Year
  Sex: Male

DRUGS (6)
  1. DIDANOSINE [Suspect]
     Indication: HIV INFECTION
     Dates: start: 20000612, end: 20010209
  2. DIDANOSINE [Suspect]
     Indication: HEPATITIS C VIRUS TEST
     Dates: start: 20000612, end: 20010209
  3. ZIDOVUDINE [Suspect]
     Indication: HIV INFECTION
     Dates: start: 20000612, end: 20010209
  4. ZIDOVUDINE [Suspect]
     Indication: HEPATITIS C VIRUS TEST
     Dates: start: 20000612, end: 20010209
  5. NEVIRAPINE [Suspect]
     Indication: HIV INFECTION
     Dates: start: 20000612, end: 20010209
  6. NEVIRAPINE [Suspect]
     Indication: HEPATITIS C VIRUS TEST
     Dates: start: 20000612, end: 20010209

REACTIONS (4)
  - ALANINE AMINOTRANSFERASE INCREASED [None]
  - ASPARTATE AMINOTRANSFERASE INCREASED [None]
  - BLOOD BILIRUBIN INCREASED [None]
  - DRUG RESISTANCE [None]
